FAERS Safety Report 8613913-1 (Version None)
Quarter: 2012Q3

REPORT INFORMATION
  Report Type: 
  Country: None (occurrence: None)
  Receive Date: 20120823
  Receipt Date: 20120726
  Transmission Date: 20120928
  Serious: No
  Sender: FDA-Public Use
  Company Number: US-009507513-1204USA03604

PATIENT

DRUGS (1)
  1. AZASITE [Suspect]
     Dosage: 1-2 DF, QD
     Route: 047
     Dates: start: 20120419

REACTIONS (4)
  - OCULAR ROSACEA [None]
  - EYE PAIN [None]
  - WRONG TECHNIQUE IN DRUG USAGE PROCESS [None]
  - EYE SWELLING [None]
